FAERS Safety Report 13205944 (Version 1)
Quarter: 2017Q1

REPORT INFORMATION
  Report Type: Spontaneous
  Country: US (occurrence: US)
  Receive Date: 20170208
  Receipt Date: 20170208
  Transmission Date: 20170428
  Serious: No
  Sender: FDA-Public Use
  Company Number: US-AMGEN-USASP2016083652

PATIENT
  Age: 54 Year
  Sex: Male

DRUGS (10)
  1. NEULASTA [Suspect]
     Active Substance: PEGFILGRASTIM
     Indication: PRODUCT USED FOR UNKNOWN INDICATION
     Dosage: UNK
     Route: 065
  2. PACLITAXEL. [Concomitant]
     Active Substance: PACLITAXEL
     Indication: BRAIN NEOPLASM
  3. VINCRISTINE [Concomitant]
     Active Substance: VINCRISTINE
     Indication: LUNG NEOPLASM MALIGNANT
     Dosage: UNK
  4. CARBOPLATIN. [Concomitant]
     Active Substance: CARBOPLATIN
     Indication: LUNG NEOPLASM MALIGNANT
     Dosage: UNK
  5. VINCRISTINE [Concomitant]
     Active Substance: VINCRISTINE
     Indication: BRAIN NEOPLASM
  6. PACLITAXEL. [Concomitant]
     Active Substance: PACLITAXEL
     Indication: HEPATIC NEOPLASM
  7. CARBOPLATIN. [Concomitant]
     Active Substance: CARBOPLATIN
     Indication: HEPATIC NEOPLASM
  8. VINCRISTINE [Concomitant]
     Active Substance: VINCRISTINE
     Indication: HEPATIC NEOPLASM
  9. PACLITAXEL. [Concomitant]
     Active Substance: PACLITAXEL
     Indication: LUNG NEOPLASM MALIGNANT
     Dosage: UNK
  10. CARBOPLATIN. [Concomitant]
     Active Substance: CARBOPLATIN
     Indication: BRAIN NEOPLASM

REACTIONS (2)
  - Wrong technique in product usage process [Unknown]
  - Underdose [Unknown]

NARRATIVE: CASE EVENT DATE: 20160624
